FAERS Safety Report 6587770-1 (Version None)
Quarter: 2010Q1

REPORT INFORMATION
  Report Type: 
  Country: None (occurrence: None)
  Receive Date: 20100218
  Receipt Date: 20100205
  Transmission Date: 20100710
  Serious: Yes (Other)
  Sender: FDA-Public Use
  Company Number: PHHY2010BR06674

PATIENT
  Sex: Female

DRUGS (5)
  1. DIOVAN [Suspect]
     Indication: HYPERTENSION
     Dosage: 80 MG,(1 TABLET A DAY)
     Route: 065
  2. DIOVAN [Suspect]
     Dosage: 80 MG (1 TABLET IN THE MORNING AND 1 IN NIGHT)
     Route: 065
  3. SOMALGIN [Concomitant]
     Dosage: UNK
     Route: 065
     Dates: end: 20100101
  4. BUFERIN CARDIO [Concomitant]
     Dosage: 1 TABLET AFTER LUNCH
     Route: 065
     Dates: start: 20100101
  5. BUONA [Concomitant]
     Indication: MENOPAUSE
     Dosage: 1 TABLET AFTER LUNCH
     Route: 065
     Dates: start: 20091001

REACTIONS (5)
  - BLOOD PRESSURE INCREASED [None]
  - ERYTHEMA [None]
  - HYPERSENSITIVITY [None]
  - JOINT STABILISATION [None]
  - TENDONITIS [None]
